FAERS Safety Report 9878536 (Version 10)
Quarter: 2015Q3

REPORT INFORMATION
  Report Type: Spontaneous
  Country: GB (occurrence: GB)
  Receive Date: 20140206
  Receipt Date: 20150916
  Transmission Date: 20151125
  Serious: Yes (Life-Threatening, Hospitalization, Other)
  Sender: FDA-Public Use
  Company Number: GB-TEVA-460039ISR

PATIENT
  Age: 24 Year
  Sex: Female

DRUGS (4)
  1. CITALOPRAM [Suspect]
     Active Substance: CITALOPRAM HYDROBROMIDE
     Indication: PRODUCT USED FOR UNKNOWN INDICATION
     Route: 065
  2. CODEINE [Suspect]
     Active Substance: CODEINE
     Indication: PRODUCT USED FOR UNKNOWN INDICATION
     Route: 065
  3. TRAMADOL. [Suspect]
     Active Substance: TRAMADOL
     Indication: PRODUCT USED FOR UNKNOWN INDICATION
     Route: 065
  4. TOPAMAX [Suspect]
     Active Substance: TOPIRAMATE
     Indication: EPILEPSY
     Route: 048
     Dates: start: 201105, end: 2011

REACTIONS (15)
  - Metabolic acidosis [Recovered/Resolved]
  - Borderline personality disorder [Unknown]
  - Brain oedema [Unknown]
  - Dialysis [Unknown]
  - Organ failure [Unknown]
  - Acidosis [Recovered/Resolved]
  - Seizure [Unknown]
  - Life support [Unknown]
  - Aggression [Unknown]
  - Overdose [Unknown]
  - Weight decreased [Unknown]
  - Irritability [Unknown]
  - Personality change [Unknown]
  - Hypersensitivity [Unknown]
  - Coma [Recovered/Resolved]

NARRATIVE: CASE EVENT DATE: 2011
